FAERS Safety Report 25982707 (Version 1)
Quarter: 2025Q4

REPORT INFORMATION
  Report Type: Spontaneous
  Country: TR (occurrence: TR)
  Receive Date: 20251031
  Receipt Date: 20251031
  Transmission Date: 20260117
  Serious: Yes (Other)
  Sender: AMGEN
  Company Number: TR-AMGEN-TURSP2025211523

PATIENT
  Age: 43 Year
  Sex: Female

DRUGS (1)
  1. EVENITY [Suspect]
     Active Substance: ROMOSOZUMAB-AQQG
     Indication: Osteoporosis
     Dosage: 210 MILLIGRAM, QMO ( 1X2 A MONTH 105 MG)
     Route: 065
     Dates: start: 20250924

REACTIONS (1)
  - Open fracture [Unknown]

NARRATIVE: CASE EVENT DATE: 20250101
